FAERS Safety Report 5606202-0 (Version None)
Quarter: 2008Q1

REPORT INFORMATION
  Report Type: 
  Country: None (occurrence: None)
  Receive Date: 20080129
  Receipt Date: 20070201
  Transmission Date: 20080703
  Serious: No
  Sender: FDA-Public Use
  Company Number: A0638036A

PATIENT
  Age: 40 Year
  Sex: Female

DRUGS (2)
  1. WELLBUTRIN XL [Suspect]
     Indication: DRUG USE FOR UNKNOWN INDICATION
     Dosage: 450MG UNKNOWN
     Route: 065
  2. ANTIBIOTIC [Concomitant]

REACTIONS (2)
  - HEART RATE IRREGULAR [None]
  - PALPITATIONS [None]
